FAERS Safety Report 4678307-2 (Version None)
Quarter: 2005Q2

REPORT INFORMATION
  Report Type: 
  Country: None (occurrence: None)
  Receive Date: 20050531
  Receipt Date: 20050531
  Transmission Date: 20051028
  Serious: Yes (Other)
  Sender: FDA-Public Use
  Company Number: None

PATIENT
  Age: 50 Year
  Sex: Male
  Weight: 70.7611 kg

DRUGS (1)
  1. VIAGRA [Suspect]
     Dosage: 50 MG USED TWICE

REACTIONS (2)
  - OPTIC NEUROPATHY [None]
  - VISUAL ACUITY REDUCED [None]
